FAERS Safety Report 16851688 (Version 1)
Quarter: 2019Q3

REPORT INFORMATION
  Report Type: Spontaneous
  Country: US (occurrence: US)
  Receive Date: 20190925
  Receipt Date: 20190925
  Transmission Date: 20191005
  Serious: Yes (Other)
  Sender: FDA-Public Use
  Company Number: US-ELI_LILLY_AND_COMPANY-US201909007822

PATIENT
  Sex: Male

DRUGS (3)
  1. CYMBALTA [Suspect]
     Active Substance: DULOXETINE HYDROCHLORIDE
     Dosage: 40 MG, DAILY
     Route: 048
  2. CYMBALTA [Suspect]
     Active Substance: DULOXETINE HYDROCHLORIDE
     Indication: BACK PAIN
     Dosage: 20 MG, DAILY
     Route: 048
  3. CYMBALTA [Suspect]
     Active Substance: DULOXETINE HYDROCHLORIDE
     Dosage: 20 MG, DAILY
     Route: 048
     Dates: end: 201905

REACTIONS (8)
  - Suicidal ideation [Recovered/Resolved]
  - Drug ineffective [Not Recovered/Not Resolved]
  - Joint stiffness [Recovered/Resolved]
  - Paraesthesia [Not Recovered/Not Resolved]
  - Anger [Recovered/Resolved]
  - Wrong technique in product usage process [Unknown]
  - Drug withdrawal syndrome [Recovered/Resolved]
  - Vision blurred [Recovered/Resolved]
